FAERS Safety Report 15479462 (Version 1)
Quarter: 2018Q4

REPORT INFORMATION
  Report Type: Spontaneous
  Country: US (occurrence: US)
  Receive Date: 20181009
  Receipt Date: 20181009
  Transmission Date: 20190205
  Serious: Yes (Other)
  Sender: FDA-Public Use
  Company Number: US-ELI_LILLY_AND_COMPANY-US201810000524

PATIENT
  Age: 76 Year
  Sex: Female

DRUGS (4)
  1. ALIMTA [Suspect]
     Active Substance: PEMETREXED DISODIUM
     Indication: NON-SMALL CELL LUNG CANCER
     Dosage: UNK, UNKNOWN
     Route: 065
     Dates: start: 2015
  2. ALIMTA [Suspect]
     Active Substance: PEMETREXED DISODIUM
     Dosage: UNK
     Route: 065
     Dates: start: 20170929
  3. CARBOPLATIN. [Concomitant]
     Active Substance: CARBOPLATIN
  4. OSIMERTINIB. [Concomitant]
     Active Substance: OSIMERTINIB

REACTIONS (9)
  - Hypoaesthesia [Unknown]
  - Constipation [Unknown]
  - Night sweats [Unknown]
  - Eye swelling [Unknown]
  - Anaemia [Unknown]
  - Lacrimation increased [Unknown]
  - Fatigue [Unknown]
  - Oedema [Unknown]
  - Malignant neoplasm progression [Unknown]

NARRATIVE: CASE EVENT DATE: 20171019
